FAERS Safety Report 14279606 (Version 7)
Quarter: 2018Q3

REPORT INFORMATION
  Report Type: Report from Study
  Country: DE (occurrence: DE)
  Receive Date: 20171212
  Receipt Date: 20180918
  Transmission Date: 20181010
  Serious: Yes (Hospitalization, Other)
  Sender: FDA-Public Use
  Company Number: DE-TEVA-2017-DE-832508

PATIENT
  Age: 69 Year
  Sex: Male
  Weight: 91 kg

DRUGS (35)
  1. DEXAMETHASONE. [Suspect]
     Active Substance: DEXAMETHASONE
     Dosage: 1 MILLIGRAM DAILY;
     Route: 048
     Dates: start: 20180409, end: 20180515
  2. VEMURAFENIB. [Suspect]
     Active Substance: VEMURAFENIB
     Dosage: 480 MILLIGRAM DAILY;
     Route: 048
     Dates: start: 20170831, end: 20170903
  3. VEMURAFENIB. [Suspect]
     Active Substance: VEMURAFENIB
     Dosage: 480 MILLIGRAM DAILY;
     Route: 048
     Dates: start: 20170831, end: 20170903
  4. LEVETIRACETAM. [Concomitant]
     Active Substance: LEVETIRACETAM
     Indication: METASTASES TO CENTRAL NERVOUS SYSTEM
     Route: 048
  5. METOPROLOL. [Concomitant]
     Active Substance: METOPROLOL
     Indication: VASCULAR GRAFT
     Route: 048
     Dates: start: 20140501
  6. COBIMETINIB. [Suspect]
     Active Substance: COBIMETINIB
     Route: 048
     Dates: start: 20170904, end: 20180327
  7. DEXAMETHASONE. [Suspect]
     Active Substance: DEXAMETHASONE
     Indication: PROCEDURAL NAUSEA
     Route: 048
     Dates: start: 20170901, end: 20170903
  8. DEXAMETHASONE. [Suspect]
     Active Substance: DEXAMETHASONE
     Indication: METASTASES TO CENTRAL NERVOUS SYSTEM
     Dosage: 2 MILLIGRAM DAILY;
     Route: 048
     Dates: start: 20170922, end: 20180123
  9. DEXAMETHASONE. [Suspect]
     Active Substance: DEXAMETHASONE
     Indication: BRAIN OEDEMA
     Dosage: 4 MILLIGRAM DAILY;
     Route: 048
     Dates: start: 20180124
  10. COBIMETINIB. [Suspect]
     Active Substance: COBIMETINIB
     Indication: METASTATIC MALIGNANT MELANOMA
     Dosage: 40 MILLIGRAM DAILY;
     Route: 048
     Dates: start: 20170831, end: 20170903
  11. VEMURAFENIB. [Suspect]
     Active Substance: VEMURAFENIB
     Indication: METASTATIC MALIGNANT MELANOMA
     Dosage: 480 MILLIGRAM DAILY;
     Route: 048
     Dates: start: 20170826, end: 20170828
  12. VEMURAFENIB. [Suspect]
     Active Substance: VEMURAFENIB
     Dosage: 960 MILLIGRAM DAILY;
     Route: 048
     Dates: start: 20170907
  13. NOVAMINSULFON [Concomitant]
     Active Substance: METAMIZOLE
     Route: 048
     Dates: start: 20170823
  14. RAMIPRIL. [Concomitant]
     Active Substance: RAMIPRIL
     Indication: VASCULAR GRAFT
     Route: 048
     Dates: start: 20140501, end: 20171102
  15. ASPIRIN. [Concomitant]
     Active Substance: ASPIRIN
     Indication: HYPERTENSION
  16. DEXAMETHASONE. [Suspect]
     Active Substance: DEXAMETHASONE
     Route: 001
     Dates: start: 20170929
  17. COBIMETINIB. [Suspect]
     Active Substance: COBIMETINIB
     Dosage: 60 MILLIGRAM DAILY; DOSE 20 MG X 3 (60 MG)
     Route: 048
     Dates: start: 20170823, end: 20170828
  18. SIMVASTATIN. [Concomitant]
     Active Substance: SIMVASTATIN
     Indication: VASCULAR GRAFT
     Dosage: 30 MILLIGRAM DAILY;
     Route: 048
     Dates: start: 20150501
  19. DEXAMETHASONE. [Suspect]
     Active Substance: DEXAMETHASONE
     Indication: PROCEDURAL VOMITING
     Dosage: 4 MILLIGRAM DAILY;
     Route: 048
     Dates: start: 20170904, end: 20170921
  20. DEXAMETHASONE. [Suspect]
     Active Substance: DEXAMETHASONE
     Indication: PROCEDURAL HEADACHE
     Route: 048
     Dates: start: 20170828, end: 20170831
  21. VEMURAFENIB. [Suspect]
     Active Substance: VEMURAFENIB
     Route: 048
     Dates: start: 20170823, end: 20170826
  22. ASPIRIN. [Concomitant]
     Active Substance: ASPIRIN
     Indication: VASCULAR GRAFT
     Dosage: 100 MILLIGRAM DAILY;
     Route: 048
     Dates: start: 20140501
  23. PANTOPRAZOL [Concomitant]
     Active Substance: PANTOPRAZOLE SODIUM
     Dosage: 40 MILLIGRAM DAILY;
     Route: 048
     Dates: start: 20170201
  24. METOPROLOL. [Concomitant]
     Active Substance: METOPROLOL
     Indication: HYPERTENSION
  25. DEXAMETHASONE. [Suspect]
     Active Substance: DEXAMETHASONE
     Route: 048
     Dates: start: 20180516
  26. COBIMETINIB. [Suspect]
     Active Substance: COBIMETINIB
     Dosage: 40 MILLIGRAM DAILY;
     Route: 048
     Dates: start: 20180423, end: 20180514
  27. VEMURAFENIB. [Suspect]
     Active Substance: VEMURAFENIB
     Dosage: 720 MILLIGRAM DAILY;
     Route: 048
     Dates: start: 20170904, end: 20170906
  28. VEMURAFENIB. [Suspect]
     Active Substance: VEMURAFENIB
     Route: 048
     Dates: start: 20170904, end: 20170906
  29. DEXAMETHASONE. [Suspect]
     Active Substance: DEXAMETHASONE
     Indication: VISION BLURRED
  30. VEMURAFENIB. [Suspect]
     Active Substance: VEMURAFENIB
     Indication: MALIGNANT MELANOMA
     Dosage: 960 MILLIGRAM DAILY;
     Route: 048
     Dates: start: 20170823, end: 20170826
  31. VEMURAFENIB. [Suspect]
     Active Substance: VEMURAFENIB
     Dosage: 720 MILLIGRAM DAILY;
     Route: 048
     Dates: start: 20170904, end: 20170906
  32. RAMIPRIL. [Concomitant]
     Active Substance: RAMIPRIL
     Indication: HYPERTENSION
  33. SIMVASTATIN. [Concomitant]
     Active Substance: SIMVASTATIN
     Indication: HYPERTENSION
  34. VEMURAFENIB. [Suspect]
     Active Substance: VEMURAFENIB
     Dosage: 480 MILLIGRAM DAILY;
     Dates: start: 20170826, end: 20170828
  35. MONO EMBOLEX [Concomitant]
     Active Substance: CERTOPARIN SODIUM
     Indication: PROPHYLAXIS
     Dosage: 3000 IU (INTERNATIONAL UNIT) DAILY;
     Route: 058
     Dates: start: 20170131

REACTIONS (35)
  - Retinal cyst [Not Recovered/Not Resolved]
  - Fatigue [Not Recovered/Not Resolved]
  - Epidural lipomatosis [Unknown]
  - Peripheral nerve lesion [Unknown]
  - Metastases to central nervous system [Recovered/Resolved]
  - Photosensitivity reaction [Unknown]
  - Skin infection [Unknown]
  - Monoparesis [Unknown]
  - Cataract [Unknown]
  - Small intestinal haemorrhage [Recovered/Resolved]
  - Skin mass [Unknown]
  - Dizziness [Unknown]
  - Spinal osteoarthritis [Unknown]
  - Pain in extremity [Unknown]
  - Dizziness [Unknown]
  - Lymphoedema [Unknown]
  - Retinopathy [Recovering/Resolving]
  - Peripheral motor neuropathy [Unknown]
  - Subcutaneous abscess [Recovered/Resolved]
  - Dermal cyst [Not Recovered/Not Resolved]
  - Peripheral sensory neuropathy [Unknown]
  - Intervertebral disc protrusion [Unknown]
  - Brain oedema [Recovered/Resolved]
  - Retinopathy [Unknown]
  - Hyperkeratosis [Unknown]
  - Skin hypopigmentation [Not Recovered/Not Resolved]
  - Conjunctivitis [Not Recovered/Not Resolved]
  - Mucosal dryness [Unknown]
  - Skin exfoliation [Unknown]
  - Hyperglycaemia [Recovering/Resolving]
  - Vision blurred [Not Recovered/Not Resolved]
  - Dysgeusia [Unknown]
  - Cough [Unknown]
  - Muscular weakness [Recovered/Resolved]
  - Brain oedema [Not Recovered/Not Resolved]

NARRATIVE: CASE EVENT DATE: 20170823
